FAERS Safety Report 12443155 (Version 2)
Quarter: 2016Q3

REPORT INFORMATION
  Report Type: Spontaneous
  Country: FR (occurrence: FR)
  Receive Date: 20160607
  Receipt Date: 20160722
  Transmission Date: 20161109
  Serious: Yes (Other)
  Sender: FDA-Public Use
  Company Number: FR-PFIZER INC-2016283719

PATIENT
  Age: 74 Year
  Sex: Male

DRUGS (2)
  1. LINEZOLID. [Suspect]
     Active Substance: LINEZOLID
     Indication: ENDOCARDITIS BACTERIAL
     Dosage: 600 MG, 2X/DAY
  2. VANCOMYCIN [Concomitant]
     Active Substance: VANCOMYCIN
     Indication: ENDOCARDITIS BACTERIAL
     Dosage: 20 MG/KG, DAILY

REACTIONS (1)
  - Acute kidney injury [Unknown]
